FAERS Safety Report 4577663-3 (Version None)
Quarter: 2005Q1

REPORT INFORMATION
  Report Type: 
  Country: None (occurrence: None)
  Receive Date: 20050210
  Receipt Date: 20050203
  Transmission Date: 20050727
  Serious: Yes (Hospitalization, Other)
  Sender: FDA-Public Use
  Company Number: NL-MERCK-0502NLD00013

PATIENT
  Age: 77 Year
  Sex: Male

DRUGS (1)
  1. VIOXX [Suspect]
     Route: 065
     Dates: start: 20010101, end: 20041001

REACTIONS (3)
  - CARDIOVASCULAR DISORDER [None]
  - CEREBROVASCULAR ACCIDENT [None]
  - DEAFNESS UNILATERAL [None]
